FAERS Safety Report 5848732-2 (Version None)
Quarter: 2008Q3

REPORT INFORMATION
  Report Type: 
  Country: None (occurrence: None)
  Receive Date: 20080818
  Receipt Date: 20080730
  Transmission Date: 20090109
  Serious: No
  Sender: FDA-Public Use
  Company Number: US-BOEHRINGER INGELHEIM GMBH, GERMANY-2008-BP-11963BP

PATIENT
  Age: 57 Year
  Sex: Female

DRUGS (1)
  1. ZANTAC 75 [Suspect]
     Indication: ABDOMINAL DISTENSION
     Route: 048
     Dates: start: 20080726

REACTIONS (2)
  - ABDOMINAL PAIN [None]
  - DIARRHOEA [None]
